FAERS Safety Report 6131505-3 (Version None)
Quarter: 2009Q1

REPORT INFORMATION
  Report Type: 
  Country: None (occurrence: None)
  Receive Date: 20090325
  Receipt Date: 20080918
  Transmission Date: 20090719
  Serious: No
  Sender: FDA-Public Use
  Company Number: US-BRISTOL-MYERS SQUIBB COMPANY-14323513

PATIENT
  Age: 51 Year
  Sex: Male

DRUGS (4)
  1. ERBITUX [Suspect]
     Indication: COLON CANCER METASTATIC
     Dosage: INFUSION WAS RESTARTED WITH A 50% REDUCTION IN THE RATE OF ADMINISTRATION.
     Dates: start: 20080903, end: 20080903
  2. IRINOTECAN HCL [Concomitant]
  3. DIPHENHYDRAMINE [Concomitant]
     Indication: PREMEDICATION
     Route: 042
  4. TYLENOL [Concomitant]
     Indication: PREMEDICATION
     Route: 048

REACTIONS (1)
  - INFUSION RELATED REACTION [None]
